FAERS Safety Report 8463093-0 (Version None)
Quarter: 2012Q2

REPORT INFORMATION
  Report Type: 
  Country: None (occurrence: None)
  Receive Date: 20120323
  Receipt Date: 20111201
  Transmission Date: 20120825
  Serious: Yes (Hospitalization)
  Sender: FDA-Public Use
  Company Number: 163-21880-11111082

PATIENT
  Age: 81 Year
  Sex: Male
  Weight: 53 kg

DRUGS (1)
  1. REVLIMID [Suspect]
     Indication: MULTIPLE MYELOMA
     Dosage: 5 MG, DAILY X 28 DAYS, PO
     Route: 048
     Dates: start: 20110708, end: 20111101

REACTIONS (2)
  - PNEUMONIA [None]
  - INFECTED SKIN ULCER [None]
